FAERS Safety Report 26069003 (Version 1)
Quarter: 2025Q4

REPORT INFORMATION
  Report Type: Spontaneous
  Country: EU (occurrence: EU)
  Receive Date: 20251120
  Receipt Date: 20251120
  Transmission Date: 20260117
  Serious: Yes (Hospitalization, Other)
  Sender: AUROBINDO
  Company Number: EU-AFSSAPS-RE2025000974

PATIENT
  Age: 69 Year
  Sex: Female

DRUGS (4)
  1. MELATONIN [Suspect]
     Active Substance: MELATONIN
     Indication: Cutaneous T-cell lymphoma
     Dosage: UNK
  2. FENOFIBRATE [Suspect]
     Active Substance: FENOFIBRATE
     Indication: Cutaneous T-cell lymphoma
     Dosage: UNK
     Dates: start: 20251020, end: 20251028
  3. BEXAROTENE [Suspect]
     Active Substance: BEXAROTENE
     Indication: Cutaneous T-cell lymphoma
     Dosage: 5 DOSAGE FORM, UNK
     Dates: start: 20251020, end: 20251028
  4. LEVOTHYROXINE SODIUM [Suspect]
     Active Substance: LEVOTHYROXINE SODIUM
     Indication: Cutaneous T-cell lymphoma
     Dosage: UNK
     Dates: start: 20251020, end: 20251028

REACTIONS (1)
  - Drug reaction with eosinophilia and systemic symptoms [Recovered/Resolved]

NARRATIVE: CASE EVENT DATE: 20251027
